FAERS Safety Report 8432416-0 (Version None)
Quarter: 2012Q2

REPORT INFORMATION
  Report Type: 
  Country: None (occurrence: None)
  Receive Date: 20120613
  Receipt Date: 20120608
  Transmission Date: 20120825
  Serious: Yes (Other)
  Sender: FDA-Public Use
  Company Number: US-PFIZER INC-2012139246

PATIENT

DRUGS (3)
  1. FENTANYL [Interacting]
     Dosage: UNK
  2. VERSED [Interacting]
     Dosage: UNK
  3. XANAX [Suspect]
     Dosage: UNK

REACTIONS (3)
  - HEART RATE INCREASED [None]
  - DRUG INTERACTION [None]
  - AGITATION [None]
